FAERS Safety Report 11118473 (Version 1)
Quarter: 2015Q2

REPORT INFORMATION
  Report Type: Spontaneous
  Country: US (occurrence: None)
  Receive Date: 20150514
  Receipt Date: 20150514
  Transmission Date: 20150821
  Serious: Yes (Other)
  Sender: FDA-Public Use
  Company Number: FR-SEPTODONT-201502717

PATIENT
  Age: 43 Year
  Sex: Female
  Weight: 85 kg

DRUGS (2)
  1. XOGEL ENFANT, GEL GINGIVAL LIDOCAINE; CETRIMIDE [Suspect]
     Active Substance: CETRIMIDE\LIDOCAINE
     Route: 004
     Dates: start: 20150325, end: 20150325
  2. ARTICAINE HYDROCHLORIDE; ADRENALINE TARTRATE [Suspect]
     Active Substance: ARTICAINE HYDROCHLORIDE\EPINEPHRINE BITARTRATE
     Indication: LOCAL ANAESTHESIA
     Route: 004
     Dates: start: 20150325, end: 20150325

REACTIONS (14)
  - Injection site reaction [None]
  - Application site erythema [None]
  - Pyrexia [None]
  - Hyperhidrosis [None]
  - Drug hypersensitivity [None]
  - Fatigue [None]
  - Loss of consciousness [None]
  - Dyspnoea [None]
  - Application site ulcer [None]
  - Dermatitis bullous [None]
  - Tachycardia [None]
  - Angioedema [None]
  - Palpitations [None]
  - Malaise [None]
